FAERS Safety Report 15853920 (Version 1)
Quarter: 2019Q1

REPORT INFORMATION
  Report Type: Spontaneous
  Country: US (occurrence: US)
  Receive Date: 20190122
  Receipt Date: 20190122
  Transmission Date: 20190417
  Serious: No
  Sender: FDA-Public Use
  Company Number: US-PFIZER INC-2019019636

PATIENT

DRUGS (1)
  1. ADVIL PM [Suspect]
     Active Substance: DIPHENHYDRAMINE CITRATE\IBUPROFEN
     Dosage: 2 DF, 1X/DAY (TOOK 2 PILLS)

REACTIONS (8)
  - Influenza [Unknown]
  - Feeling abnormal [Unknown]
  - Emotional distress [Unknown]
  - Abnormal dreams [Unknown]
  - Time perception altered [Unknown]
  - Sleep disorder [Unknown]
  - Hallucination, visual [Unknown]
  - Malaise [Unknown]
